FAERS Safety Report 6416822-1 (Version None)
Quarter: 2009Q4

REPORT INFORMATION
  Report Type: 
  Country: None (occurrence: None)
  Receive Date: 20091027
  Receipt Date: 20091013
  Transmission Date: 20100525
  Serious: Yes (Hospitalization)
  Sender: FDA-Public Use
  Company Number: AU-MYLANLABS-2009S1017845

PATIENT
  Sex: Male

DRUGS (2)
  1. DIAZEPAM [Suspect]
     Indication: SUICIDE ATTEMPT
     Dosage: HAD TAKEN A `HAND FULL' OF TABLETS
     Route: 048
  2. PROMETHAZINE [Suspect]
     Indication: SUICIDE ATTEMPT
     Route: 048

REACTIONS (6)
  - AGGRESSION [None]
  - AGITATION [None]
  - INTENTIONAL OVERDOSE [None]
  - POISONING [None]
  - SINUS TACHYCARDIA [None]
  - TACHYPNOEA [None]
